FAERS Safety Report 11272921 (Version 1)
Quarter: 2015Q3

REPORT INFORMATION
  Report Type: Spontaneous
  Country: US (occurrence: None)
  Receive Date: 20150713
  Receipt Date: 20150713
  Transmission Date: 20151125
  Serious: Yes (Hospitalization)
  Sender: FDA-Public Use
  Company Number: None

PATIENT
  Age: 59 Year
  Sex: Female
  Weight: 95.8 kg

DRUGS (1)
  1. INVOKANA [Suspect]
     Active Substance: CANAGLIFLOZIN
     Indication: TYPE 2 DIABETES MELLITUS
     Route: 048
     Dates: start: 201502, end: 201503

REACTIONS (21)
  - Tooth infection [None]
  - Acute kidney injury [None]
  - Dehydration [None]
  - Vomiting [None]
  - Nocturia [None]
  - Hypokalaemia [None]
  - Asthenia [None]
  - Prerenal failure [None]
  - Dysstasia [None]
  - Abnormal faeces [None]
  - Mental status changes [None]
  - Nausea [None]
  - Abasia [None]
  - Metabolic acidosis [None]
  - Diarrhoea haemorrhagic [None]
  - Chills [None]
  - Muscle spasms [None]
  - Lethargy [None]
  - Hypoaesthesia [None]
  - Dialysis [None]
  - Weight decreased [None]

NARRATIVE: CASE EVENT DATE: 20150601
